FAERS Safety Report 4449191-7 (Version None)
Quarter: 2004Q3

REPORT INFORMATION
  Report Type: 
  Country: None (occurrence: None)
  Receive Date: 20040910
  Receipt Date: 20040831
  Transmission Date: 20050211
  Serious: Yes (Other)
  Sender: FDA-Public Use
  Company Number: 2004061631

PATIENT
  Age: 24 Year
  Sex: Female
  Weight: 61 kg

DRUGS (1)
  1. FLUCONAZOLE [Suspect]
     Indication: FUNGAL INFECTION
     Dosage: (1 D), ORAL
     Route: 048
     Dates: start: 20031020, end: 20031020

REACTIONS (6)
  - CAESAREAN SECTION [None]
  - DRUG EXPOSURE DURING PREGNANCY [None]
  - HELLP SYNDROME [None]
  - HYPERURICAEMIA [None]
  - NEPHROPATHY [None]
  - THROMBOCYTOPENIA [None]
